FAERS Safety Report 6292216-7 (Version None)
Quarter: 2009Q3

REPORT INFORMATION
  Report Type: 
  Country: None (occurrence: None)
  Receive Date: 20090731
  Receipt Date: 20090720
  Transmission Date: 20100115
  Serious: Yes (Life-Threatening, Hospitalization)
  Sender: FDA-Public Use
  Company Number: IN-RANBAXY-2009RR-25497

PATIENT
  Age: 26 Year
  Sex: Female

DRUGS (2)
  1. FLUCONAZOLE [Suspect]
     Indication: CANDIDURIA
     Dosage: 200 MG, QD
     Route: 048
  2. FLUCONAZOLE [Suspect]
     Indication: CANDIDURIA
     Route: 042

REACTIONS (2)
  - CARDIAC ARREST [None]
  - VENTRICULAR ARRHYTHMIA [None]
